FAERS Safety Report 6245755-9 (Version None)
Quarter: 2009Q2

REPORT INFORMATION
  Report Type: 
  Country: None (occurrence: None)
  Receive Date: 20090625
  Receipt Date: 20090615
  Transmission Date: 20091009
  Serious: Yes (Other)
  Sender: FDA-Public Use
  Company Number: GB-MERCK-0906GBR00079

PATIENT
  Sex: Female

DRUGS (4)
  1. ZETIA [Suspect]
     Route: 048
     Dates: start: 20090301
  2. ATORVASTATIN [Suspect]
     Route: 065
     Dates: end: 20090301
  3. ATORVASTATIN [Suspect]
     Route: 065
     Dates: start: 20090301, end: 20090101
  4. ATORVASTATIN [Suspect]
     Route: 065
     Dates: start: 20090101

REACTIONS (1)
  - CONTUSION [None]
